FAERS Safety Report 21176868 (Version 1)
Quarter: 2022Q3

REPORT INFORMATION
  Report Type: Spontaneous
  Country: ES (occurrence: None)
  Receive Date: 20220805
  Receipt Date: 20220805
  Transmission Date: 20221027
  Serious: Yes (Life-Threatening, Hospitalization)
  Sender: FDA-Public Use
  Company Number: ES-ROCHE-3154573

PATIENT
  Age: 17 Year
  Sex: Male

DRUGS (3)
  1. CLONAZEPAM [Suspect]
     Active Substance: CLONAZEPAM
     Indication: Substance use
     Dosage: OVER-INGESTION OF 3 TABLETS OF CLONAZEPAM
     Route: 048
     Dates: start: 20220311, end: 20220311
  2. PREGABALIN [Suspect]
     Active Substance: PREGABALIN
     Indication: Substance use
     Dosage: BLISTER PACK OF PREGABALIN 25 MG (12-14 TABLETS) AROUND 22H ON THE NIGHT OF 11/MAR/2022
     Route: 048
     Dates: start: 20220311, end: 20220311
  3. ALBUTEROL [Concomitant]
     Active Substance: ALBUTEROL
     Indication: Asthma

REACTIONS (3)
  - Depressed level of consciousness [Recovered/Resolved]
  - Intentional overdose [Unknown]
  - Substance use [Recovered/Resolved]

NARRATIVE: CASE EVENT DATE: 20220312
